FAERS Safety Report 6533048-1 (Version None)
Quarter: 2010Q1

REPORT INFORMATION
  Report Type: 
  Country: None (occurrence: None)
  Receive Date: 20100111
  Receipt Date: 20100105
  Transmission Date: 20100710
  Serious: Yes (Other)
  Sender: FDA-Public Use
  Company Number: US-PFIZER INC-2010002548

PATIENT
  Sex: Female
  Weight: 76.657 kg

DRUGS (3)
  1. LIPITOR [Suspect]
     Indication: BLOOD CHOLESTEROL INCREASED
     Dosage: 40 MG, 1X/DAY
     Route: 048
     Dates: start: 20091201
  2. PLAVIX [Concomitant]
  3. METOPROLOL TARTRATE [Concomitant]

REACTIONS (4)
  - CONTUSION [None]
  - DYSPNOEA [None]
  - INSOMNIA [None]
  - PAIN [None]
